FAERS Safety Report 20009770 (Version 1)
Quarter: 2021Q4

REPORT INFORMATION
  Report Type: Report from Study
  Country: None (occurrence: LB)
  Receive Date: 20211029
  Receipt Date: 20211029
  Transmission Date: 20220303
  Serious: Yes (Death, Hospitalization, Disabling)
  Sender: FDA-Public Use
  Company Number: LB-ABBVIE-21K-093-4137941-00

PATIENT
  Age: 81 Year
  Sex: Female

DRUGS (5)
  1. VENETOCLAX [Suspect]
     Active Substance: VENETOCLAX
     Indication: Chronic lymphocytic leukaemia
     Route: 048
     Dates: start: 20201001, end: 20201007
  2. VENETOCLAX [Suspect]
     Active Substance: VENETOCLAX
     Route: 048
     Dates: start: 20201008, end: 20201014
  3. VENETOCLAX [Suspect]
     Active Substance: VENETOCLAX
     Route: 048
     Dates: start: 20201015, end: 20201021
  4. VENETOCLAX [Suspect]
     Active Substance: VENETOCLAX
     Route: 048
     Dates: start: 20201022, end: 20201028
  5. VENETOCLAX [Suspect]
     Active Substance: VENETOCLAX
     Route: 048
     Dates: start: 20201030, end: 202012

REACTIONS (3)
  - Cerebrovascular accident [Fatal]
  - Hemiplegia [Fatal]
  - Cerebrovascular accident [Fatal]

NARRATIVE: CASE EVENT DATE: 20210901
